FAERS Safety Report 12203271 (Version 1)
Quarter: 2016Q1

REPORT INFORMATION
  Report Type: Spontaneous
  Country: US (occurrence: None)
  Receive Date: 20160321
  Receipt Date: 20160321
  Transmission Date: 20160526
  Serious: No
  Sender: FDA-Public Use
  Company Number: None

PATIENT
  Age: 80 Year
  Sex: Female

DRUGS (1)
  1. SIMPONI [Suspect]
     Active Substance: GOLIMUMAB
     Indication: MALAISE
     Route: 048
     Dates: start: 20160224

REACTIONS (3)
  - Fatigue [None]
  - Oral pain [None]
  - Dry mouth [None]

NARRATIVE: CASE EVENT DATE: 20160301
